FAERS Safety Report 8507089-9 (Version None)
Quarter: 2012Q3

REPORT INFORMATION
  Report Type: 
  Country: None (occurrence: None)
  Receive Date: 20120703
  Receipt Date: 20120622
  Transmission Date: 20120928
  Serious: Yes (Hospitalization)
  Sender: FDA-Public Use
  Company Number: 2012SP035060

PATIENT
  Age: 44 Year
  Sex: Female

DRUGS (3)
  1. ADVAIR HFA [Suspect]
     Indication: ASTHMA
     Dosage: 2 DF;BID;INH
     Route: 055
     Dates: start: 20120201, end: 20120531
  2. INTERFERON [Concomitant]
  3. ASMANEX TWISTHALER [Suspect]
     Indication: ASTHMA
     Dates: end: 20110801

REACTIONS (7)
  - TRANSIENT ISCHAEMIC ATTACK [None]
  - COUGH [None]
  - GLOSSODYNIA [None]
  - TONGUE DISORDER [None]
  - CANDIDIASIS [None]
  - WHEEZING [None]
  - APHONIA [None]
